FAERS Safety Report 20121052 (Version 1)
Quarter: 2021Q4

REPORT INFORMATION
  Report Type: Spontaneous
  Country: FR (occurrence: None)
  Receive Date: 20211127
  Receipt Date: 20211127
  Transmission Date: 20220303
  Serious: Yes (Congenital Anomaly)
  Sender: FDA-Public Use
  Company Number: FR-ROCHE-2961134

PATIENT
  Age: 0 Day
  Sex: Male

DRUGS (3)
  1. PEGASYS [Suspect]
     Active Substance: PEGINTERFERON ALFA-2A
     Indication: Product used for unknown indication
     Route: 064
     Dates: start: 20201209, end: 20210904
  2. ASPIRIN DL-LYSINE [Concomitant]
     Active Substance: ASPIRIN DL-LYSINE
     Indication: Essential thrombocythaemia
     Route: 064
     Dates: start: 202012, end: 20210904
  3. GLYCINE [Concomitant]
     Active Substance: GLYCINE
     Route: 064
     Dates: start: 202012, end: 20210904

REACTIONS (2)
  - Transposition of the great vessels [Recovered/Resolved with Sequelae]
  - Foetal exposure during pregnancy [Unknown]

NARRATIVE: CASE EVENT DATE: 20210904
